FAERS Safety Report 15754332 (Version 1)
Quarter: 2018Q4

REPORT INFORMATION
  Report Type: Spontaneous
  Country: ES (occurrence: ES)
  Receive Date: 20181223
  Receipt Date: 20181223
  Transmission Date: 20190205
  Serious: Yes (Disabling)
  Sender: FDA-Public Use
  Company Number: ES-009507513-1806ESP010037

PATIENT
  Age: 73 Year
  Sex: Female

DRUGS (2)
  1. CELESTONE CRONODOSE [Suspect]
     Active Substance: BETAMETHASONE
     Indication: JOINT INJURY
     Dosage: UNK
     Dates: start: 20180226, end: 20180226
  2. CELESTONE CRONODOSE [Suspect]
     Active Substance: BETAMETHASONE
     Indication: OSTEOARTHRITIS
     Dosage: UNK
     Dates: start: 201808, end: 201808

REACTIONS (8)
  - Gait inability [Not Recovered/Not Resolved]
  - Paraesthesia [Not Recovered/Not Resolved]
  - Erythema [Not Recovered/Not Resolved]
  - Peripheral swelling [Not Recovered/Not Resolved]
  - Muscle spasms [Not Recovered/Not Resolved]
  - Arthralgia [Not Recovered/Not Resolved]
  - Pain [Not Recovered/Not Resolved]
  - Bacterial infection [Not Recovered/Not Resolved]

NARRATIVE: CASE EVENT DATE: 2018
